FAERS Safety Report 7302699-9 (Version None)
Quarter: 2011Q1

REPORT INFORMATION
  Report Type: 
  Country: None (occurrence: None)
  Receive Date: 20110218
  Receipt Date: 20110215
  Transmission Date: 20110831
  Serious: Yes (Other)
  Sender: FDA-Public Use
  Company Number: US-PFIZER INC-2010178721

PATIENT
  Sex: Male

DRUGS (3)
  1. ACETYLSALICYLIC ACID [Suspect]
     Dosage: UNK
  2. PLAVIX [Suspect]
  3. LIPITOR [Suspect]
     Dosage: UNK

REACTIONS (1)
  - HAEMORRHAGE [None]
